FAERS Safety Report 19679078 (Version 1)
Quarter: 2021Q3

REPORT INFORMATION
  Report Type: Other
  Country: IN (occurrence: CZ)
  Receive Date: 20210809
  Receipt Date: 20210809
  Transmission Date: 20211014
  Serious: Yes (Hospitalization, Other)
  Sender: FDA-Public Use
  Company Number: CZ-BRECKENRIDGE PHARMACEUTICAL, INC.-2114810

PATIENT
  Age: 88 Year
  Sex: Male

DRUGS (2)
  1. WARFARIN SODIUM. [Interacting]
     Active Substance: WARFARIN SODIUM
  2. TERBINAFINE. [Suspect]
     Active Substance: TERBINAFINE
     Indication: ONYCHOMYCOSIS
     Route: 048

REACTIONS (4)
  - Transient ischaemic attack [Unknown]
  - Therapeutic product ineffective [Unknown]
  - Acute vestibular syndrome [Unknown]
  - Drug interaction [Unknown]
